FAERS Safety Report 5013517-6 (Version None)
Quarter: 2006Q2

REPORT INFORMATION
  Report Type: 
  Country: None (occurrence: None)
  Receive Date: 20060525
  Receipt Date: 20060525
  Transmission Date: 20061013
  Serious: No
  Sender: FDA-Public Use
  Company Number: None

PATIENT
  Age: 32 Year
  Sex: Male

DRUGS (2)
  1. METOPROLOL TARTRATE [Suspect]
     Dosage: TABLET
  2. SEROQUEL [Suspect]
     Dosage: TABLET

REACTIONS (5)
  - BLOOD PRESSURE DECREASED [None]
  - DRUG DISPENSING ERROR [None]
  - FEELING ABNORMAL [None]
  - INCORRECT DOSE ADMINISTERED [None]
  - MEDICATION ERROR [None]
